FAERS Safety Report 20546385 (Version 2)
Quarter: 2022Q1

REPORT INFORMATION
  Report Type: Spontaneous
  Country: US (occurrence: US)
  Receive Date: 20220303
  Receipt Date: 20220315
  Transmission Date: 20220424
  Serious: Yes (Hospitalization)
  Sender: FDA-Public Use
  Company Number: US-CLOVIS ONCOLOGY-CLO-2022-000213

PATIENT
  Sex: Female

DRUGS (1)
  1. RUBRACA [Suspect]
     Active Substance: RUCAPARIB CAMSYLATE
     Indication: Ovarian epithelial cancer
     Dosage: 300 MILLIGRAM, BID
     Route: 048
     Dates: start: 20220114, end: 20220301

REACTIONS (8)
  - Urinary tract infection [Unknown]
  - Pharyngitis streptococcal [Unknown]
  - Dehydration [Unknown]
  - Immune system disorder [Unknown]
  - Fall [Unknown]
  - Insomnia [Unknown]
  - Diarrhoea [Unknown]
  - Product dose omission issue [Unknown]
